FAERS Safety Report 8488326-6 (Version None)
Quarter: 2012Q3

REPORT INFORMATION
  Report Type: 
  Country: None (occurrence: None)
  Receive Date: 20120705
  Receipt Date: 20120625
  Transmission Date: 20120928
  Serious: Yes (Other)
  Sender: FDA-Public Use
  Company Number: US-JNJFOC-20120213892

PATIENT
  Sex: Female
  Weight: 66.68 kg

DRUGS (15)
  1. NAPROXEN [Concomitant]
     Indication: PAIN
     Route: 048
     Dates: start: 20080101
  2. ADVAIR DISKUS 100/50 [Concomitant]
     Indication: ASTHMA
     Dosage: 250/50
     Route: 055
     Dates: start: 20100101
  3. METHOTREXATE [Suspect]
     Indication: PRODUCT USED FOR UNKNOWN INDICATION
     Route: 065
     Dates: end: 20111101
  4. VITAMINS AND MINERALS [Concomitant]
     Route: 065
  5. REMICADE [Suspect]
     Route: 042
     Dates: start: 20080101
  6. METFORMIN HCL [Concomitant]
     Indication: DIABETES MELLITUS
     Route: 048
     Dates: start: 20010101
  7. NASONEX [Concomitant]
     Route: 065
  8. REMICADE [Suspect]
     Route: 042
     Dates: start: 20090101
  9. ZETIA [Concomitant]
     Indication: BLOOD CHOLESTEROL INCREASED
     Route: 048
     Dates: start: 20100101
  10. REMICADE [Suspect]
     Indication: PSORIATIC ARTHROPATHY
     Route: 042
     Dates: start: 20120208
  11. SPIRONOLACTONE [Concomitant]
     Indication: BLOOD TESTOSTERONE ABNORMAL
     Route: 048
     Dates: start: 20120213
  12. SPIRONOLACTONE [Concomitant]
     Indication: HYPERTENSION
     Route: 048
     Dates: start: 20120213
  13. SINGULAIR [Concomitant]
     Indication: ASTHMA
     Route: 048
     Dates: start: 20100101
  14. LIPITOR [Suspect]
     Indication: BLOOD CHOLESTEROL INCREASED
     Route: 065
  15. BENICAR [Suspect]
     Indication: HYPERTENSION
     Route: 065
     Dates: start: 20100101, end: 20120201

REACTIONS (19)
  - MENOPAUSE [None]
  - MUSCULOSKELETAL STIFFNESS [None]
  - BREAST DISORDER [None]
  - HAIR GROWTH ABNORMAL [None]
  - NASOPHARYNGITIS [None]
  - BACK PAIN [None]
  - DIABETES MELLITUS [None]
  - SEASONAL ALLERGY [None]
  - BODY HEIGHT DECREASED [None]
  - BLOOD PRESSURE FLUCTUATION [None]
  - CARDIAC MURMUR [None]
  - ARTHROPATHY [None]
  - BLOOD TESTOSTERONE INCREASED [None]
  - BODY TEMPERATURE INCREASED [None]
  - SLEEP APNOEA SYNDROME [None]
  - ALOPECIA [None]
  - HEPATIC ENZYME ABNORMAL [None]
  - ADVERSE EVENT [None]
  - INFECTION [None]
